FAERS Safety Report 18558580 (Version 1)
Quarter: 2020Q4

REPORT INFORMATION
  Report Type: Spontaneous
  Country: US (occurrence: US)
  Receive Date: 20201125
  Receipt Date: 20201125
  Transmission Date: 20210114
  Serious: Yes (Death)
  Sender: FDA-Public Use
  Company Number: None

PATIENT
  Age: 23 Year
  Sex: Female

DRUGS (7)
  1. MIDAZOLAM. [Concomitant]
     Active Substance: MIDAZOLAM
  2. FENTANYL. [Concomitant]
     Active Substance: FENTANYL
  3. MISOPROSTOL. [Suspect]
     Active Substance: MISOPROSTOL
  4. CLINDAMYCIN. [Concomitant]
     Active Substance: CLINDAMYCIN
  5. DIGOXIN. [Concomitant]
     Active Substance: DIGOXIN
  6. AZITHROMYCIN ANHYDROUS. [Concomitant]
     Active Substance: AZITHROMYCIN ANHYDROUS
  7. MIFEPRISTONE [Suspect]
     Active Substance: MIFEPRISTONE
     Route: 048
     Dates: start: 20170201

REACTIONS (1)
  - Pulmonary embolism [None]

NARRATIVE: CASE EVENT DATE: 20170201
